FAERS Safety Report 4884847-3 (Version None)
Quarter: 2006Q1

REPORT INFORMATION
  Report Type: 
  Country: None (occurrence: None)
  Receive Date: 20060117
  Receipt Date: 20060103
  Transmission Date: 20060701
  Serious: Yes (Hospitalization, Other)
  Sender: FDA-Public Use
  Company Number: 2006003531

PATIENT
  Sex: Male
  Weight: 77.1115 kg

DRUGS (3)
  1. VIAGRA [Suspect]
     Indication: ERECTILE DYSFUNCTION
     Dosage: ORAL
     Route: 048
  2. NORVASC [Suspect]
     Indication: CARDIAC DISORDER
     Dosage: (10 MG), ORAL
     Route: 048
  3. BENICAR [Concomitant]

REACTIONS (5)
  - BLOOD PRESSURE INADEQUATELY CONTROLLED [None]
  - CARDIAC DISORDER [None]
  - DRUG INEFFECTIVE [None]
  - HEART RATE INCREASED [None]
  - MIGRAINE [None]
